FAERS Safety Report 21409451 (Version 1)
Quarter: 2022Q4

REPORT INFORMATION
  Report Type: Spontaneous
  Country: BR (occurrence: BR)
  Receive Date: 20221004
  Receipt Date: 20221004
  Transmission Date: 20230113
  Serious: Yes (Other)
  Sender: FDA-Public Use
  Company Number: BR-TAKEDA-2022TUS066959

PATIENT
  Sex: Female
  Weight: 80 kg

DRUGS (1)
  1. LISDEXAMFETAMINE DIMESYLATE [Suspect]
     Active Substance: LISDEXAMFETAMINE DIMESYLATE
     Indication: Disturbance in attention
     Dosage: 30 MILLILITER, QD
     Route: 065
     Dates: end: 202208

REACTIONS (2)
  - Condition aggravated [Unknown]
  - Product availability issue [Unknown]
